FAERS Safety Report 20837312 (Version 1)
Quarter: 2022Q2

REPORT INFORMATION
  Report Type: Spontaneous
  Country: US (occurrence: US)
  Receive Date: 20220517
  Receipt Date: 20220517
  Transmission Date: 20220721
  Serious: Yes (Other)
  Sender: FDA-Public Use
  Company Number: US-GLENMARK PHARMACEUTICALS-2014GMK010187

PATIENT

DRUGS (1)
  1. NORGESTIMATE AND ETHINYL ESTRADIOL [Suspect]
     Active Substance: ETHINYL ESTRADIOL\NORGESTIMATE
     Indication: Contraception
     Dosage: UNK
     Route: 048
     Dates: start: 201311

REACTIONS (6)
  - Loss of consciousness [Unknown]
  - Heart rate increased [Unknown]
  - Fall [Unknown]
  - Malaise [Unknown]
  - Stress [Unknown]
  - Product substitution issue [Unknown]
